FAERS Safety Report 18202470 (Version 1)
Quarter: 2020Q3

REPORT INFORMATION
  Report Type: Spontaneous
  Country: US (occurrence: US)
  Receive Date: 20200827
  Receipt Date: 20200827
  Transmission Date: 20201103
  Serious: Yes (Other)
  Sender: FDA-Public Use
  Company Number: None

PATIENT
  Age: 61 Year
  Sex: Male
  Weight: 79.65 kg

DRUGS (7)
  1. MEKTOVI [Suspect]
     Active Substance: BINIMETINIB
     Route: 048
     Dates: start: 20200721
  2. XARELTO [Concomitant]
     Active Substance: RIVAROXABAN
  3. PREDNISONE. [Concomitant]
     Active Substance: PREDNISONE
  4. BACTRIM [Concomitant]
     Active Substance: SULFAMETHOXAZOLE\TRIMETHOPRIM
  5. MYCOPHENOLATE [Concomitant]
     Active Substance: MYCOPHENOLIC ACID
  6. MULTIVITAMINS [Concomitant]
     Active Substance: VITAMINS
  7. LEVOTHYROXINE. [Concomitant]
     Active Substance: LEVOTHYROXINE

REACTIONS (2)
  - Disease progression [None]
  - Rash [None]
